APPROVED DRUG PRODUCT: VORICONAZOLE
Active Ingredient: VORICONAZOLE
Strength: 200MG/VIAL
Dosage Form/Route: POWDER;INTRAVENOUS
Application: N208562 | Product #001 | TE Code: AP
Applicant: HIKMA PHARMACEUTICALS USA INC
Approved: Mar 9, 2017 | RLD: No | RS: No | Type: RX